FAERS Safety Report 25686926 (Version 1)
Quarter: 2025Q3

REPORT INFORMATION
  Report Type: Spontaneous
  Country: US (occurrence: US)
  Receive Date: 20250816
  Receipt Date: 20250816
  Transmission Date: 20251021
  Serious: Yes (Disabling, Other)
  Sender: RADIUS PHARM
  Company Number: US-RADIUS HEALTH INC.-US-RADIUS-25052209

PATIENT
  Sex: Female

DRUGS (1)
  1. TYMLOS [Suspect]
     Active Substance: ABALOPARATIDE
     Indication: Product used for unknown indication
     Dosage: 80 MICROGRAM, QD
     Route: 058

REACTIONS (12)
  - Parkinson^s disease [Unknown]
  - Disability [Unknown]
  - Systemic lupus erythematosus [Unknown]
  - Multiple sclerosis [Unknown]
  - Hemiplegia [Unknown]
  - Sensory loss [Unknown]
  - Memory impairment [Unknown]
  - Eye disorder [Unknown]
  - Tremor [Unknown]
  - Hypothyroidism [Unknown]
  - Hypoglycaemia [Unknown]
  - COVID-19 [Unknown]
